FAERS Safety Report 4808216-7 (Version None)
Quarter: 2005Q4

REPORT INFORMATION
  Report Type: 
  Country: None (occurrence: None)
  Receive Date: 20051025
  Receipt Date: 20050506
  Transmission Date: 20060501
  Serious: Yes (Death)
  Sender: FDA-Public Use
  Company Number: DE-BOEHRINGER INGELHEIM GMBH, GERMANY-2005-DE-01735DE

PATIENT
  Sex: Male
  Weight: 64.8 kg

DRUGS (1)
  1. TIPRANAVIR + RITONAVIR CO-ADMIN [Suspect]
     Indication: HIV INFECTION
     Dosage: 1000 MG TIPRANAVIR / 400 MG RITONAVIR
     Route: 048
     Dates: start: 20050131

REACTIONS (7)
  - CYTOMEGALOVIRUS CHORIORETINITIS [None]
  - DRUG TOXICITY [None]
  - ENCEPHALITIS CYTOMEGALOVIRUS [None]
  - KAPOSI'S SARCOMA [None]
  - NEUROPATHY PERIPHERAL [None]
  - OPTIC ATROPHY [None]
  - OPTIC NERVE DISORDER [None]
